FAERS Safety Report 16376825 (Version 2)
Quarter: 2019Q2

REPORT INFORMATION
  Report Type: Spontaneous
  Country: FR (occurrence: FR)
  Receive Date: 20190531
  Receipt Date: 20190607
  Transmission Date: 20190711
  Serious: Yes (Death, Other)
  Sender: FDA-Public Use
  Company Number: FR-UCBSA-2019022580

PATIENT
  Age: 62 Year
  Sex: Male
  Weight: 62 kg

DRUGS (12)
  1. SOLU-MEDROL [Concomitant]
     Active Substance: METHYLPREDNISOLONE SODIUM SUCCINATE
     Indication: BACTERIAL INFECTION
     Dosage: VARIABLE
     Route: 042
     Dates: start: 20190308, end: 20190402
  2. CEFOTAXIME [Concomitant]
     Active Substance: CEFOTAXIME SODIUM
     Indication: MENINGITIS
     Dosage: VARIABLE
     Route: 042
     Dates: start: 20190303, end: 20190307
  3. ROCEPHINE [Concomitant]
     Active Substance: CEFTRIAXONE SODIUM
     Indication: MENINGITIS
     Dosage: 2 GRAM, ONCE DAILY (QD)
     Route: 042
     Dates: start: 20190302, end: 20190302
  4. KEPPRA [Suspect]
     Active Substance: LEVETIRACETAM
     Indication: SEIZURE PROPHYLAXIS
     Dosage: 1.5G DAILY VARIABLE
     Route: 042
     Dates: start: 20190305, end: 20190401
  5. MIDAZOLAM [Concomitant]
     Active Substance: MIDAZOLAM HYDROCHLORIDE
     Indication: ANAESTHESIA
     Dosage: VARIABLE
     Route: 042
     Dates: start: 20190303, end: 20190311
  6. KEPPRA [Suspect]
     Active Substance: LEVETIRACETAM
     Indication: OFF LABEL USE
  7. KARDEGIC [Concomitant]
     Active Substance: ASPIRIN DL-LYSINE
     Indication: PROPHYLAXIS
     Dosage: 1 DOSAGE FORM, ONCE DAILY (QD)
     Route: 048
     Dates: start: 20190314, end: 20190401
  8. DEXAMETHASONE. [Concomitant]
     Active Substance: DEXAMETHASONE
     Indication: MENINGITIS
     Dosage: 10 MILLIGRAM, ONCE DAILY (QD)
     Route: 042
     Dates: start: 20190303, end: 20190308
  9. LOVENOX [Concomitant]
     Active Substance: ENOXAPARIN SODIUM
     Indication: PROPHYLAXIS
     Dosage: 1 DOSAGE FORM, ONCE DAILY (QD)
     Route: 058
     Dates: start: 20190304, end: 20190401
  10. FENTANYL. [Concomitant]
     Active Substance: FENTANYL
     Indication: ANAESTHESIA
     Dosage: VARIABLE
     Route: 042
     Dates: start: 20190303, end: 20190311
  11. TAMIFLU [Concomitant]
     Active Substance: OSELTAMIVIR PHOSPHATE
     Indication: INFLUENZA
     Dosage: 150 MILLIGRAM, ONCE DAILY (QD)
     Route: 048
     Dates: start: 20190304, end: 20190305
  12. AMOXICILLINE [Concomitant]
     Active Substance: AMOXICILLIN
     Indication: MENINGITIS
     Dosage: 12 GRAM ONCE DAILY
     Route: 042
     Dates: start: 20190307, end: 20190316

REACTIONS (2)
  - Off label use [Unknown]
  - Hepatocellular injury [Recovering/Resolving]

NARRATIVE: CASE EVENT DATE: 20190305
